FAERS Safety Report 22348111 (Version 2)
Quarter: 2023Q2

REPORT INFORMATION
  Report Type: Spontaneous
  Country: NP (occurrence: NP)
  Receive Date: 20230522
  Receipt Date: 20230525
  Transmission Date: 20230722
  Serious: Yes (Death, Hospitalization, Other)
  Sender: FDA-Public Use
  Company Number: NP-AMGEN-NPLSP2023083694

PATIENT
  Age: 57 Year
  Sex: Male

DRUGS (1)
  1. FILGRASTIM [Suspect]
     Active Substance: FILGRASTIM
     Indication: Neutropenia
     Dosage: 5 MICROGRAM/KILOGRAM
     Route: 058

REACTIONS (6)
  - Death [Fatal]
  - Major depression [Not Recovered/Not Resolved]
  - Catatonia [Unknown]
  - Cystitis [Unknown]
  - Escherichia urinary tract infection [Unknown]
  - Refusal of treatment by patient [Unknown]
